FAERS Safety Report 5491818-5 (Version None)
Quarter: 2007Q4

REPORT INFORMATION
  Report Type: 
  Country: None (occurrence: None)
  Receive Date: 20071018
  Receipt Date: 20071011
  Transmission Date: 20080405
  Serious: Yes (Hospitalization, Other)
  Sender: FDA-Public Use
  Company Number: 2007-04558

PATIENT
  Age: 53 Year
  Sex: Female
  Weight: 47.2 kg

DRUGS (1)
  1. CARISOPRODOL [Suspect]
     Indication: FIBROMYALGIA
     Dosage: 6 TABLET, DAILY (PRESCRIBED), ORAL
     Route: 048
     Dates: start: 19920101, end: 20070924

REACTIONS (12)
  - ABNORMAL BEHAVIOUR [None]
  - BLOOD PRESSURE INCREASED [None]
  - COORDINATION ABNORMAL [None]
  - DRUG ABUSER [None]
  - DRUG DEPENDENCE [None]
  - DRUG TOXICITY [None]
  - DRUG WITHDRAWAL SYNDROME [None]
  - DYSARTHRIA [None]
  - HYPERSOMNIA [None]
  - LOSS OF CONSCIOUSNESS [None]
  - ROAD TRAFFIC ACCIDENT [None]
  - SLEEP ATTACKS [None]
